FAERS Safety Report 9745811 (Version 1)
Quarter: 2013Q4

REPORT INFORMATION
  Report Type: Spontaneous
  Country: US (occurrence: None)
  Receive Date: 20131206
  Receipt Date: 20131206
  Transmission Date: 20140711
  Serious: No
  Sender: FDA-Public Use
  Company Number: None

PATIENT
  Age: 48 Year
  Sex: Female

DRUGS (1)
  1. HUMIRA 40MG ABBVIE [Suspect]
     Indication: PSORIASIS
     Dosage: 40MG, QOW, SQ
     Dates: start: 20131017

REACTIONS (4)
  - Pain in extremity [None]
  - Neuropathy peripheral [None]
  - Swelling [None]
  - Rash [None]
